FAERS Safety Report 21147643 (Version 1)
Quarter: 2022Q3

REPORT INFORMATION
  Report Type: Spontaneous
  Country: US (occurrence: None)
  Receive Date: 20220729
  Receipt Date: 20220729
  Transmission Date: 20221026
  Serious: No
  Sender: FDA-Public Use
  Company Number: None

PATIENT
  Age: 68 Year
  Sex: Female
  Weight: 83 kg

DRUGS (1)
  1. LANREOTIDE [Suspect]
     Active Substance: LANREOTIDE
     Indication: Lung cancer metastatic
     Dosage: FREQUENCY : ONCE;?
     Route: 058
     Dates: start: 20220726, end: 20220726

REACTIONS (5)
  - Loss of consciousness [None]
  - Dizziness [None]
  - Hypertension [None]
  - Incorrect drug administration rate [None]
  - Disorientation [None]

NARRATIVE: CASE EVENT DATE: 20220726
